FAERS Safety Report 5707823-7 (Version None)
Quarter: 2008Q2

REPORT INFORMATION
  Report Type: 
  Country: None (occurrence: None)
  Receive Date: 20080417
  Receipt Date: 20080409
  Transmission Date: 20081010
  Serious: Yes (Other)
  Sender: FDA-Public Use
  Company Number: US-BAYER-200819743NA

PATIENT

DRUGS (1)
  1. ULTRAVIST 370 [Suspect]
     Dates: start: 20080408

REACTIONS (4)
  - DYSPHONIA [None]
  - HYPOTENSION [None]
  - LARYNGEAL OEDEMA [None]
  - URTICARIA [None]
